FAERS Safety Report 4489621-8 (Version None)
Quarter: 2004Q4

REPORT INFORMATION
  Report Type: 
  Country: None (occurrence: None)
  Receive Date: 20041026
  Receipt Date: 20041012
  Transmission Date: 20050328
  Serious: Yes (Hospitalization, Other)
  Sender: FDA-Public Use
  Company Number: 2004239193JP

PATIENT
  Age: 83 Year
  Sex: Female

DRUGS (1)
  1. DELTA-CORTEF [Suspect]
     Indication: UVEITIS
     Dosage: 10-25MG/DAILY; ORAL
     Route: 048

REACTIONS (3)
  - HAEMOPTYSIS [None]
  - LUNG INFECTION [None]
  - STRONGYLOIDIASIS [None]
